FAERS Safety Report 4446680-6 (Version None)
Quarter: 2004Q3

REPORT INFORMATION
  Report Type: 
  Country: None (occurrence: None)
  Receive Date: 20040902
  Receipt Date: 20040817
  Transmission Date: 20050211
  Serious: Yes (Other)
  Sender: FDA-Public Use
  Company Number: B0343257A

PATIENT
  Age: 45 Year
  Sex: Female

DRUGS (1)
  1. HYCAMTIN [Suspect]

REACTIONS (3)
  - CRYPTOGENIC ORGANIZING PNEUMONIA [None]
  - DRUG TOXICITY [None]
  - PULMONARY TOXICITY [None]
